FAERS Safety Report 7577631-3 (Version None)
Quarter: 2011Q2

REPORT INFORMATION
  Report Type: 
  Country: None (occurrence: None)
  Receive Date: 20110628
  Receipt Date: 20110615
  Transmission Date: 20111010
  Serious: Yes (Death, Other)
  Sender: FDA-Public Use
  Company Number: US-BAYER-200941038NA

PATIENT
  Age: 83 Year
  Sex: Male
  Weight: 77.551 kg

DRUGS (24)
  1. VANCOMYCIN [Concomitant]
     Dosage: 1 G, UNK
     Route: 042
  2. FLAGYL [Concomitant]
  3. DIGOXIN [Concomitant]
     Dosage: 0.25 MG, QD
     Route: 048
  4. IMIPENEM [Concomitant]
     Dosage: 250 MG, BID
     Route: 042
  5. CEFOTAXIME [Concomitant]
  6. RED BLOOD CELLS [Concomitant]
     Dosage: 3 UNITS ONCE
     Route: 042
     Dates: start: 20021121
  7. PLASMA [Concomitant]
     Dosage: 8 U, ONCE
     Route: 042
     Dates: start: 20021104
  8. PLASMA [Concomitant]
     Dosage: 5 UNITS ONCE
     Route: 042
     Dates: start: 20021121
  9. PLATELETS [Concomitant]
     Dosage: 18 U, ONCE
     Route: 042
     Dates: start: 20021104
  10. LEVOPHED [Concomitant]
     Dosage: UNK
     Route: 042
     Dates: start: 20021104, end: 20021104
  11. ATENOLOL [Concomitant]
     Dosage: 25 MG, QD
     Route: 048
  12. HEPARIN [Concomitant]
     Dosage: UNK
     Route: 042
     Dates: start: 20021104, end: 20021104
  13. FENTANYL [Concomitant]
     Dosage: UNK
     Route: 042
     Dates: start: 20021104, end: 20021104
  14. PLATELETS [Concomitant]
     Dosage: 2 UNITS, ONCE
     Route: 042
     Dates: start: 20021121
  15. PRIMACOR [Concomitant]
     Dosage: UNK
     Route: 042
     Dates: start: 20021104, end: 20021104
  16. TRASYLOL [Suspect]
     Indication: MITRAL VALVE REPLACEMENT
     Dosage: 1 ML INITIAL TEST DOSE
     Route: 042
     Dates: start: 20021104, end: 20021104
  17. TRASYLOL [Suspect]
     Indication: CORONARY ARTERY BYPASS
     Dosage: 349 ML
     Route: 042
     Dates: start: 20021104, end: 20021104
  18. AMIODARONE HCL [Concomitant]
  19. PRIMAXIN [Concomitant]
  20. TRASYLOL [Suspect]
     Dosage: 250 ML TOTAL DOASGE
     Route: 042
     Dates: start: 20021121
  21. CEFTAZIDIME [Concomitant]
  22. RED BLOOD CELLS [Concomitant]
     Dosage: 4 U, ONCE
     Route: 042
     Dates: start: 20021104
  23. COUMADIN [Concomitant]
     Dosage: 4 MG, QD
     Route: 048
  24. CEFAZOLIN [Concomitant]
     Dosage: 2 GRAM
     Route: 042
     Dates: start: 20021104, end: 20021104

REACTIONS (5)
  - RENAL FAILURE [None]
  - DEATH [None]
  - INJURY [None]
  - EMOTIONAL DISTRESS [None]
  - ANXIETY [None]
